FAERS Safety Report 4813921-2 (Version None)
Quarter: 2005Q4

REPORT INFORMATION
  Report Type: 
  Country: None (occurrence: None)
  Receive Date: 20051028
  Receipt Date: 20040907
  Transmission Date: 20060501
  Serious: No
  Sender: FDA-Public Use
  Company Number: US-GLAXOSMITHKLINE-A0524739A

PATIENT
  Sex: Female

DRUGS (5)
  1. SEREVENT [Suspect]
     Indication: CHRONIC OBSTRUCTIVE PULMONARY DISEASE
     Dosage: 2PUFF PER DAY
     Route: 055
     Dates: start: 20040201
  2. ATROVENT [Concomitant]
  3. FEMARA [Concomitant]
  4. GUAIFENESIN [Concomitant]
  5. VALIUM [Concomitant]

REACTIONS (1)
  - DRUG INEFFECTIVE [None]
